FAERS Safety Report 5376664-5 (Version None)
Quarter: 2007Q2

REPORT INFORMATION
  Report Type: 
  Country: None (occurrence: None)
  Receive Date: 20070629
  Receipt Date: 20070619
  Transmission Date: 20071010
  Serious: Yes (Hospitalization)
  Sender: FDA-Public Use
  Company Number: 2007SP008724

PATIENT
  Age: 49 Year
  Sex: Female

DRUGS (6)
  1. DIPROFOS (BETAMETHASONE SODIUM PHOSPHATE/DIPROPIONATE) (BETAMETHASONE [Suspect]
     Indication: PAIN
     Dosage: 1 DF; IM
     Route: 030
     Dates: start: 20070409
  2. ALPRAZOLAM (CON.) [Concomitant]
  3. WARFARIN (CON.) [Concomitant]
  4. SERTRALINE HYDROCHLORIDE (CON.) [Concomitant]
  5. AMBROXOL (CON.) [Concomitant]
  6. AMOXICILLIN (CON.) [Concomitant]

REACTIONS (4)
  - EYE SWELLING [None]
  - FEELING HOT [None]
  - LIP SWELLING [None]
  - SWELLING FACE [None]
